FAERS Safety Report 25415837 (Version 1)
Quarter: 2025Q2

REPORT INFORMATION
  Report Type: Spontaneous
  Country: CN (occurrence: CN)
  Receive Date: 20250610
  Receipt Date: 20250610
  Transmission Date: 20250717
  Serious: Yes (Other)
  Sender: BAXTER
  Company Number: None

PATIENT
  Age: 50 Year
  Sex: Female
  Weight: 75 kg

DRUGS (5)
  1. CYCLOPHOSPHAMIDE [Suspect]
     Active Substance: CYCLOPHOSPHAMIDE
     Indication: Breast cancer female
     Dosage: 1.1 G, QD + 0.9% SODIUM CHLORIDE INJECTION 55ML (ONCE)
     Route: 041
     Dates: start: 20250504, end: 20250504
  2. SODIUM CHLORIDE [Suspect]
     Active Substance: SODIUM CHLORIDE
     Dosage: (0.9%) 55 ML, QD + CYCLOPHOSPHAMIDE FOR INJECTION 1.1G (ONCE)
     Route: 041
     Dates: start: 20250504, end: 20250504
  3. DEXTROSE [Suspect]
     Active Substance: DEXTROSE MONOHYDRATE
     Dosage: (5%) 1 ML, QD + STERILE WATER FOR INJECTION 80ML + PIRARUBICIN HYDROCHLORIDE FOR INJECTION 90MG (ONC
     Route: 041
     Dates: start: 20250504, end: 20250504
  4. PIRARUBICIN HYDROCHLORIDE [Suspect]
     Active Substance: PIRARUBICIN HYDROCHLORIDE
     Indication: Breast cancer female
     Dosage: 90 MG, QD + 5% GLUCOSE INJECTION 1ML + STERILE WATER FOR INJECTION 80ML (ONCE)
     Route: 041
     Dates: start: 20250504, end: 20250504
  5. STERILE WATER [Concomitant]
     Active Substance: WATER
     Dosage: 80 ML, QD + 5% GLUCOSE INJECTION 1ML + PIRARUBICIN HYDROCHLORIDE FOR INJECTION 90MG (ONCE)
     Route: 041
     Dates: start: 20250504, end: 20250504

REACTIONS (1)
  - Hepatic function abnormal [Recovering/Resolving]

NARRATIVE: CASE EVENT DATE: 20250523
